FAERS Safety Report 7989738-7 (Version None)
Quarter: 2011Q4

REPORT INFORMATION
  Report Type: 
  Country: None (occurrence: None)
  Receive Date: 20111219
  Receipt Date: 20111208
  Transmission Date: 20120403
  Serious: Yes (Death)
  Sender: FDA-Public Use
  Company Number: US-NOVOPROD-328013

PATIENT

DRUGS (16)
  1. ACETAMINOPHEN W/ CODEINE [Concomitant]
     Indication: PRODUCT USED FOR UNKNOWN INDICATION
     Dosage: 3 MLS, EVERY 4 HOURS AS NEEDED
     Route: 048
     Dates: start: 20110426
  2. FLOXIN                             /00239102/ [Concomitant]
     Indication: PRODUCT USED FOR UNKNOWN INDICATION
     Dosage: 5 DROPS, BOTH EARS 2 TIMES DAILY FOR 7 DAYS
     Route: 001
     Dates: start: 20110426, end: 20110503
  3. NORVASC [Concomitant]
     Indication: PRODUCT USED FOR UNKNOWN INDICATION
     Dosage: 2 MG, BID
     Route: 048
     Dates: start: 20110416
  4. HEPARIN [Concomitant]
     Indication: PRODUCT USED FOR UNKNOWN INDICATION
     Dosage: 200 U, UNK
     Route: 065
     Dates: start: 20110426, end: 20110426
  5. NORVASC [Concomitant]
     Dosage: 2 TIMES, QD
     Route: 048
     Dates: start: 20110425, end: 20110426
  6. NORDITROPIN FLEXPRO [Suspect]
     Indication: RENAL FAILURE CHRONIC
     Dosage: 1.0 MG, QD
     Route: 058
     Dates: start: 20101220
  7. TYLENOL W/ CODEINE NO. 3 [Concomitant]
     Indication: PRODUCT USED FOR UNKNOWN INDICATION
     Dosage: UNKNOWN
     Route: 065
  8. ACTIVASE [Concomitant]
     Indication: PRODUCT USED FOR UNKNOWN INDICATION
     Dosage: 2 MG, PRN
     Route: 042
     Dates: start: 20110426, end: 20110426
  9. NORDITROPIN FLEXPRO [Suspect]
     Dosage: UNKNOWN
     Route: 058
     Dates: start: 20070101, end: 20090101
  10. AMOXIL [Concomitant]
     Indication: PRODUCT USED FOR UNKNOWN INDICATION
     Dosage: 5 MLS, 3 TIMES A DAY FOR 5 DAYS
     Route: 048
     Dates: start: 20110426, end: 20110501
  11. TENORMIN [Concomitant]
     Indication: PRODUCT USED FOR UNKNOWN INDICATION
     Dosage: 12.5 MG, QD
     Route: 048
     Dates: start: 20110416
  12. PROCRIT                            /00909301/ [Concomitant]
     Indication: PRODUCT USED FOR UNKNOWN INDICATION
     Dosage: 1500 U, SINGLE
     Route: 042
     Dates: start: 20110426, end: 20110426
  13. FLOXIN                             /00239102/ [Concomitant]
     Dosage: 5 DROPS 2 TIMES QD
     Route: 001
     Dates: start: 20110425, end: 20110426
  14. CALCIUM CARBONATE [Concomitant]
     Indication: PRODUCT USED FOR UNKNOWN INDICATION
     Dosage: 1250 MG, TID WITH MEALS
     Route: 048
     Dates: start: 20110414
  15. AMLODIPINE [Concomitant]
     Indication: PRODUCT USED FOR UNKNOWN INDICATION
     Dosage: 6 MG, BID
     Route: 048
  16. FLUTICASONE PROPIONATE [Concomitant]
     Indication: PRODUCT USED FOR UNKNOWN INDICATION
     Dosage: 2 SPRAYS TO EACH NOSTRIL, BID
     Route: 045

REACTIONS (1)
  - RESPIRATORY FAILURE [None]
